FAERS Safety Report 23241433 (Version 1)
Quarter: 2023Q4

REPORT INFORMATION
  Report Type: Report from Study
  Country: US (occurrence: None)
  Receive Date: 20231129
  Receipt Date: 20231129
  Transmission Date: 20240110
  Serious: Yes (Other)
  Sender: FDA-Public Use
  Company Number: 2023A265903

PATIENT
  Age: 22205 Day
  Sex: Male

DRUGS (3)
  1. CALQUENCE [Suspect]
     Active Substance: ACALABRUTINIB
     Indication: B-cell type acute leukaemia
     Route: 048
     Dates: start: 202310
  2. VENCLEXTA [Suspect]
     Active Substance: VENETOCLAX
     Indication: B-cell type acute leukaemia
     Route: 048
  3. GAZYVA [Concomitant]
     Active Substance: OBINUTUZUMAB

REACTIONS (12)
  - COVID-19 [Unknown]
  - White blood cell count increased [Unknown]
  - Lymphadenopathy [Unknown]
  - Nasopharyngitis [Unknown]
  - Lower respiratory tract infection [Unknown]
  - Headache [Unknown]
  - Lymphocyte count decreased [Unknown]
  - Chest pain [Unknown]
  - Pulmonary pain [Unknown]
  - Poor quality sleep [Unknown]
  - Illness [Unknown]
  - Product dose omission issue [Unknown]

NARRATIVE: CASE EVENT DATE: 20231121
